FAERS Safety Report 11644219 (Version 1)
Quarter: 2015Q4

REPORT INFORMATION
  Report Type: Spontaneous
  Country: FR (occurrence: FR)
  Receive Date: 20151020
  Receipt Date: 20151020
  Transmission Date: 20160304
  Serious: Yes (Other)
  Sender: FDA-Public Use
  Company Number: FR-AUROBINDO-AUR-APL-2015-09390

PATIENT
  Age: 81 Year
  Sex: Female

DRUGS (2)
  1. TRAMADOL ARROW 100MG [Suspect]
     Active Substance: TRAMADOL
     Indication: NEURALGIA
     Dosage: UNK
     Route: 048
     Dates: start: 20150629, end: 201507
  2. LYRICA [Suspect]
     Active Substance: PREGABALIN
     Indication: NEURALGIA
     Dosage: 50 MG TWICE DAILY AND THEN 75 MG TWICE DAILY
     Route: 065
     Dates: start: 20150701, end: 20150724

REACTIONS (2)
  - Mental impairment [Unknown]
  - Ageusia [Unknown]

NARRATIVE: CASE EVENT DATE: 20150706
